FAERS Safety Report 10172423 (Version 1)
Quarter: 2014Q2

REPORT INFORMATION
  Report Type: Spontaneous
  Country: AU (occurrence: AU)
  Receive Date: 20140515
  Receipt Date: 20140515
  Transmission Date: 20141212
  Serious: Yes (Other)
  Sender: FDA-Public Use
  Company Number: AU-BAYER-2014-070225

PATIENT
  Sex: Female

DRUGS (9)
  1. ACETYLSALICYLIC ACID (} 100 MG) [Suspect]
     Indication: ANTIPHOSPHOLIPID SYNDROME
     Dosage: 100 MG, DAILY DOSE
  2. ENOXAPARIN [Concomitant]
     Indication: ANTIPHOSPHOLIPID SYNDROME
     Dosage: 60 MG (1 MG/KG), BID
  3. ENOXAPARIN [Concomitant]
     Indication: ANTIPHOSPHOLIPID SYNDROME
  4. HYDROXYCHLOROQUINE [Concomitant]
     Indication: SYSTEMIC LUPUS ERYTHEMATOSUS
     Dosage: 400 MG, DAILY DOSE
  5. PREDNISOLONE [Concomitant]
  6. PREDNISOLONE [Concomitant]
     Dosage: 10 MG, UNK
  7. WARFARIN [Concomitant]
  8. AZATHIOPRINE [Concomitant]
     Dosage: 100 MG, DAILY DOSE
  9. PLASMA [Concomitant]

REACTIONS (6)
  - Pre-eclampsia [None]
  - Exposure during pregnancy [None]
  - Off label use [None]
  - Hypertension [None]
  - Proteinuria [None]
  - Premature labour [None]
